FAERS Safety Report 8276932 (Version 3)
Quarter: 2013Q2

REPORT INFORMATION
  Report Type: Spontaneous
  Country: VE (occurrence: VE)
  Receive Date: 20111206
  Receipt Date: 20130416
  Transmission Date: 20140414
  Serious: Yes (Hospitalization, Congenital Anomaly, Other)
  Sender: FDA-Public Use
  Company Number: PHHY2011VE105864

PATIENT
  Age: 79 Year
  Sex: Female

DRUGS (7)
  1. ACLASTA [Suspect]
     Indication: OSTEOPOROSIS
     Dosage: 5 MG, ONCE A YEAR
     Route: 042
     Dates: start: 20091102
  2. ACLASTA [Suspect]
     Dosage: 5 MG, ONCE A YEAR
     Route: 042
     Dates: start: 20101108
  3. ACLASTA [Suspect]
     Dosage: 5 MG, ONCE A YEAR
     Route: 042
     Dates: start: 201111
  4. PROTELOS (STRONTIUM RANELATE) [Concomitant]
     Indication: OSTEOPOROSIS
  5. CALTRATE [Concomitant]
     Indication: OSTEOPOROSIS
  6. TRANGOREX [Concomitant]
  7. REMINAL [Concomitant]
     Dosage: 10 MG, BID

REACTIONS (4)
  - Hernial eventration [Recovered/Resolved]
  - Sciatica [Recovered/Resolved]
  - Fall [Recovered/Resolved]
  - Spinal pain [Recovered/Resolved]
